FAERS Safety Report 14881427 (Version 1)
Quarter: 2018Q2

REPORT INFORMATION
  Report Type: Spontaneous
  Country: US (occurrence: US)
  Receive Date: 20180511
  Receipt Date: 20180511
  Transmission Date: 20180711
  Serious: No
  Sender: FDA-Public Use
  Company Number: US-009507513-1805USA003216

PATIENT
  Age: 20 Year
  Sex: Female

DRUGS (6)
  1. EFAVIRENZ (+) EMTRICITABINE (+) TENOFOVIR DISOPROXIL FUMARATE [Suspect]
     Active Substance: EFAVIRENZ\EMTRICITABINE\TENOFOVIR DISOPROXIL FUMARATE
     Dosage: UNK; STARTED 88 WEEKS PRIOR TO GESTATION, 1 (UNITS UNSPECIFIED)
     Route: 048
  2. ABACAVIR SULFATE (+) LAMIVUDINE (+) ZIDOVUDINE [Suspect]
     Active Substance: ABACAVIR SULFATE\LAMIVUDINE\ZIDOVUDINE
     Dosage: UNK; STARTED AT WEEK 27 OF GESTATION PERIOD, 2 (UNITS UNSPECIFIED)
     Route: 048
  3. ZIDOVUDINE. [Suspect]
     Active Substance: ZIDOVUDINE
     Dosage: UNK; STARTED AT WEEK 39 OF GESTATION PERIOD, 1 (UNITS UNSPECIFIED)
     Route: 042
  4. LOPINAVIR (+) RITONAVIR [Suspect]
     Active Substance: LOPINAVIR\RITONAVIR
     Dosage: UNK; STARTED AT WEEK 27 OF GESTATION PERIOD, 6 (UNIST UNSPECIFIED)
     Route: 048
  5. ZIDOVUDINE. [Suspect]
     Active Substance: ZIDOVUDINE
     Dosage: UNK; STARTED AT WEEK 39 OF GESTATION PERIOD, 2 (UNITS UNSPECIFIED)
     Route: 042
  6. ISENTRESS [Suspect]
     Active Substance: RALTEGRAVIR POTASSIUM
     Dosage: UNK; STARTED AT WEEK 27 OF GESTATION PERIOD, 800 (UNITS UNSPECIFIED)
     Route: 048

REACTIONS (2)
  - Maternal exposure during pregnancy [Recovered/Resolved]
  - No adverse event [Unknown]
